FAERS Safety Report 6371444-6 (Version None)
Quarter: 2009Q3

REPORT INFORMATION
  Report Type: 
  Country: None (occurrence: None)
  Receive Date: 20090923
  Receipt Date: 20071206
  Transmission Date: 20100115
  Serious: No
  Sender: FDA-Public Use
  Company Number: US-ASTRAZENECA-2007UW12678

PATIENT
  Age: 15721 Day
  Sex: Female
  Weight: 74.6 kg

DRUGS (7)
  1. SEROQUEL [Suspect]
     Indication: BIPOLAR DISORDER
     Route: 048
     Dates: start: 20040101, end: 20060323
  2. SEROQUEL [Suspect]
     Route: 048
  3. RISPERDAL [Concomitant]
     Dates: start: 20070101, end: 20070830
  4. EFFEXOR [Concomitant]
     Route: 048
  5. VALIUM [Concomitant]
     Route: 048
  6. LOVASTATIN [Concomitant]
     Route: 048
  7. MENTAX [Concomitant]
     Route: 048

REACTIONS (2)
  - BLOOD GLUCOSE ABNORMAL [None]
  - TYPE 1 DIABETES MELLITUS [None]
